FAERS Safety Report 7736746-7 (Version None)
Quarter: 2011Q3

REPORT INFORMATION
  Report Type: 
  Country: None (occurrence: None)
  Receive Date: 20110902
  Receipt Date: 20110824
  Transmission Date: 20111222
  Serious: Yes (Life-Threatening, Hospitalization, Other)
  Sender: FDA-Public Use
  Company Number: 2011MA012541

PATIENT
  Age: 32 Year
  Sex: Female
  Weight: 48 kg

DRUGS (3)
  1. CARBAMAZEPINE [Suspect]
     Indication: SUICIDE ATTEMPT
     Dosage: 32 GM;
  2. ETHANOL [Suspect]
     Indication: PRODUCT USED FOR UNKNOWN INDICATION
     Dosage: 190 MG/D
  3. ACETAMINOPHEN [Suspect]
     Indication: PRODUCT USED FOR UNKNOWN INDICATION
     Dosage: 45 MG/ML

REACTIONS (15)
  - NERVOUS SYSTEM DISORDER [None]
  - SUICIDE ATTEMPT [None]
  - HYPOREFLEXIA [None]
  - CARDIOVASCULAR DISORDER [None]
  - HYPOTONIA [None]
  - GASTROINTESTINAL SOUNDS ABNORMAL [None]
  - HAEMODIALYSIS [None]
  - CONVULSION [None]
  - HYPOTENSION [None]
  - CORNEAL REFLEX DECREASED [None]
  - GRAND MAL CONVULSION [None]
  - TOXICITY TO VARIOUS AGENTS [None]
  - OVERDOSE [None]
  - UNRESPONSIVE TO STIMULI [None]
  - ALANINE AMINOTRANSFERASE INCREASED [None]
